FAERS Safety Report 21509906 (Version 1)
Quarter: 2022Q4

REPORT INFORMATION
  Report Type: Spontaneous
  Country: JP (occurrence: JP)
  Receive Date: 20221026
  Receipt Date: 20221026
  Transmission Date: 20230113
  Serious: Yes (Other)
  Sender: FDA-Public Use
  Company Number: JP-JAZZ-2021-JP-020583

PATIENT
  Age: 41 Year
  Sex: Male
  Weight: 53 kg

DRUGS (1)
  1. DEFITELIO [Suspect]
     Active Substance: DEFIBROTIDE SODIUM
     Indication: Venoocclusive liver disease
     Dosage: 25 MILLIGRAM/KILOGRAM (DAILY DOSE)
     Route: 042
     Dates: start: 20210510, end: 20210528

REACTIONS (2)
  - Gastric haemorrhage [Recovered/Resolved]
  - Off label use [Unknown]

NARRATIVE: CASE EVENT DATE: 20210510
